FAERS Safety Report 6231976-8 (Version None)
Quarter: 2009Q2

REPORT INFORMATION
  Report Type: 
  Country: None (occurrence: None)
  Receive Date: 20090616
  Receipt Date: 20090604
  Transmission Date: 20091009
  Serious: Yes (Death, Hospitalization, Other)
  Sender: FDA-Public Use
  Company Number: CZ-WYE-H09542209

PATIENT
  Sex: Male
  Weight: 68 kg

DRUGS (2)
  1. TEMSIROLIMUS [Suspect]
     Indication: RENAL CELL CARCINOMA
     Route: 042
     Dates: start: 20081112, end: 20090527
  2. BEVACIZUMAB [Concomitant]
     Indication: RENAL CELL CARCINOMA
     Route: 042
     Dates: start: 20081112, end: 20090407

REACTIONS (1)
  - CONFUSIONAL STATE [None]
